FAERS Safety Report 6361367-0 (Version None)
Quarter: 2009Q3

REPORT INFORMATION
  Report Type: 
  Country: None (occurrence: None)
  Receive Date: 20090918
  Receipt Date: 20090914
  Transmission Date: 20100115
  Serious: Yes (Life-Threatening, Hospitalization)
  Sender: FDA-Public Use
  Company Number: B0594021A

PATIENT
  Sex: Male

DRUGS (2)
  1. AUGMENTIN '125' [Suspect]
     Dosage: 400MG TWICE PER DAY
     Route: 048
     Dates: start: 20090906, end: 20090909
  2. UNKNOWN DRUG [Concomitant]

REACTIONS (1)
  - ACETONAEMIC VOMITING [None]
